FAERS Safety Report 18009259 (Version 1)
Quarter: 2020Q3

REPORT INFORMATION
  Report Type: Spontaneous
  Country: US (occurrence: US)
  Receive Date: 20200710
  Receipt Date: 20200710
  Transmission Date: 20201103
  Serious: Yes (Other)
  Sender: FDA-Public Use
  Company Number: US-ROCHE-2497922

PATIENT
  Age: 72 Year
  Sex: Female

DRUGS (3)
  1. PEPCID [Concomitant]
     Active Substance: FAMOTIDINE
     Route: 065
  2. HYDROCORTISONE. [Concomitant]
     Active Substance: HYDROCORTISONE
     Route: 065
  3. GAZYVA [Suspect]
     Active Substance: OBINUTUZUMAB
     Indication: PRODUCT USED FOR UNKNOWN INDICATION
     Route: 042

REACTIONS (8)
  - Flushing [Unknown]
  - Hypoaesthesia oral [Unknown]
  - Loss of consciousness [Unknown]
  - Throat irritation [Unknown]
  - Hypoaesthesia [Unknown]
  - Dry mouth [Unknown]
  - Infusion related reaction [Unknown]
  - Chest discomfort [Unknown]
